FAERS Safety Report 5073914-X (Version None)
Quarter: 2006Q3

REPORT INFORMATION
  Report Type: 
  Country: None (occurrence: None)
  Receive Date: 20060808
  Receipt Date: 20050615
  Transmission Date: 20061208
  Serious: No
  Sender: FDA-Public Use
  Company Number: US-AMGEN-KDL139021

PATIENT
  Sex: Female
  Weight: 94 kg

DRUGS (2)
  1. PROCRIT [Suspect]
     Indication: RENAL FAILURE CHRONIC
     Dates: start: 20040801
  2. UNSPECIFIED MEDICATION [Concomitant]

REACTIONS (7)
  - DRUG INEFFECTIVE [None]
  - DYSPNOEA [None]
  - FATIGUE [None]
  - OEDEMA [None]
  - SOMNOLENCE [None]
  - SYNCOPE [None]
  - WEIGHT DECREASED [None]
